FAERS Safety Report 7960728-3 (Version None)
Quarter: 2011Q4

REPORT INFORMATION
  Report Type: 
  Country: None (occurrence: None)
  Receive Date: 20111206
  Receipt Date: 20111019
  Transmission Date: 20120403
  Serious: Yes (Other)
  Sender: FDA-Public Use
  Company Number: PHHY2011IT37342

PATIENT
  Sex: Male

DRUGS (3)
  1. SALT SOLUTIONS [Concomitant]
  2. TASIGNA [Suspect]
     Indication: CHRONIC MYELOID LEUKAEMIA
     Dosage: 800 MG DAILY
     Route: 048
     Dates: start: 20051101
  3. ENALAPRIL MALEATE [Concomitant]

REACTIONS (1)
  - FEMORAL ARTERY OCCLUSION [None]
